FAERS Safety Report 6834716-4 (Version None)
Quarter: 2010Q3

REPORT INFORMATION
  Report Type: 
  Country: None (occurrence: None)
  Receive Date: 20100712
  Receipt Date: 20070420
  Transmission Date: 20110219
  Serious: No
  Sender: FDA-Public Use
  Company Number: US-PFIZER INC-2007033439

PATIENT
  Sex: Female
  Weight: 75 kg

DRUGS (4)
  1. CHANTIX [Suspect]
     Indication: SMOKING CESSATION THERAPY
     Dates: start: 20070405, end: 20070401
  2. SULAR [Concomitant]
  3. TOPROL-XL [Concomitant]
  4. SPIRIVA [Concomitant]

REACTIONS (1)
  - NAUSEA [None]
